FAERS Safety Report 6275337-4 (Version None)
Quarter: 2009Q3

REPORT INFORMATION
  Report Type: 
  Country: None (occurrence: None)
  Receive Date: 20090721
  Receipt Date: 20090713
  Transmission Date: 20100115
  Serious: Yes (Hospitalization)
  Sender: FDA-Public Use
  Company Number: B0583966A

PATIENT
  Sex: Male

DRUGS (3)
  1. ZOVIRAX [Suspect]
     Indication: HERPES ZOSTER
     Dosage: 800MG FOUR TIMES PER DAY
     Route: 048
     Dates: start: 20090629, end: 20090705
  2. LOXONIN [Suspect]
     Indication: DRUG USE FOR UNKNOWN INDICATION
     Route: 065
  3. MUCOSTA [Concomitant]
     Route: 048

REACTIONS (2)
  - GASTRIC PERFORATION [None]
  - HAEMATEMESIS [None]
